FAERS Safety Report 8890134 (Version 1)
Quarter: 2012Q4

REPORT INFORMATION
  Report Type: Spontaneous
  Country: US (occurrence: None)
  Receive Date: 20121105
  Receipt Date: 20121105
  Transmission Date: 20130627
  Serious: Yes (Life-Threatening, Hospitalization)
  Sender: FDA-Public Use
  Company Number: None

PATIENT
  Age: 41 Year
  Sex: Male
  Weight: 83.92 kg

DRUGS (1)
  1. ATORVASTATIN [Suspect]
     Indication: HIGH CHOLESTEROL
     Dosage: 20 mg day po
     Route: 048
     Dates: start: 20120913, end: 20120928

REACTIONS (3)
  - Rhabdomyolysis [None]
  - Fatigue [None]
  - Muscular weakness [None]
